FAERS Safety Report 6194142-0 (Version None)
Quarter: 2009Q2

REPORT INFORMATION
  Report Type: 
  Country: None (occurrence: None)
  Receive Date: 20090518
  Receipt Date: 20090514
  Transmission Date: 20091009
  Serious: Yes (Hospitalization, Other)
  Sender: FDA-Public Use
  Company Number: US-GENENTECH-282629

PATIENT
  Sex: Female

DRUGS (5)
  1. HERCEPTIN [Suspect]
     Indication: BREAST CANCER
     Dosage: 450 MG, SINGLE
     Route: 042
     Dates: start: 20090505
  2. DOCETAXEL [Concomitant]
     Indication: BREAST CANCER
     Dosage: UNK
     Dates: start: 20090505
  3. CARBOPLATIN [Concomitant]
     Indication: BREAST CANCER
     Dosage: UNK
     Dates: start: 20090505
  4. BENADRYL [Concomitant]
     Indication: ERYTHEMA
     Dosage: 25 MG, SINGLE
     Route: 048
     Dates: start: 20090505
  5. SOLU-CORTEF [Concomitant]
     Indication: ERYTHEMA
     Dosage: 100 MG, SINGLE
     Route: 042
     Dates: start: 20090505

REACTIONS (3)
  - PETECHIAE [None]
  - PLATELET COUNT DECREASED [None]
  - PULMONARY OEDEMA [None]
